FAERS Safety Report 26085346 (Version 1)
Quarter: 2025Q4

REPORT INFORMATION
  Report Type: Report from Study
  Country: CA (occurrence: CA)
  Receive Date: 20251125
  Receipt Date: 20251125
  Transmission Date: 20260117
  Serious: Yes (Other)
  Sender: JOHNSON AND JOHNSON
  Company Number: CA-JNJFOC-20250944911

PATIENT
  Age: 17 Year
  Sex: Female
  Weight: 118 kg

DRUGS (2)
  1. REMICADE [Suspect]
     Active Substance: INFLIXIMAB
     Indication: Crohn^s disease
     Dosage: RECENT DOSE RECEIVED ON 27-SEP-2025
     Route: 041
  2. REMICADE [Suspect]
     Active Substance: INFLIXIMAB
     Route: 041
     Dates: start: 20200905

REACTIONS (2)
  - Anal abscess [Recovered/Resolved]
  - Off label use [Unknown]
